FAERS Safety Report 9544146 (Version 2)
Quarter: 2013Q3

REPORT INFORMATION
  Report Type: Report from Study
  Country: US (occurrence: US)
  Receive Date: 20130923
  Receipt Date: 20130923
  Transmission Date: 20140515
  Serious: Yes (Hospitalization)
  Sender: FDA-Public Use
  Company Number: US-ABBVIE-13P-163-1115776-00

PATIENT
  Age: 63 Year
  Sex: Male

DRUGS (11)
  1. HUMIRA [Suspect]
     Indication: CROHN^S DISEASE
     Route: 058
     Dates: start: 20130619, end: 20130619
  2. HUMIRA [Suspect]
     Route: 058
     Dates: start: 20130703, end: 20130703
  3. HUMIRA [Suspect]
     Route: 058
     Dates: start: 20130911, end: 20130911
  4. PREDNISONE [Concomitant]
     Indication: CROHN^S DISEASE
  5. NEXIUM [Concomitant]
     Indication: PRODUCT USED FOR UNKNOWN INDICATION
  6. NEXIUM [Concomitant]
  7. CELLCEPT [Concomitant]
     Indication: LIVER TRANSPLANT
  8. PROGRAF [Concomitant]
     Indication: LIVER TRANSPLANT
  9. UNKNOWN MEDICATION [Concomitant]
     Indication: GALLBLADDER DISORDER
  10. INSULIN [Concomitant]
     Indication: DIABETES MELLITUS
  11. ACTIGALL [Concomitant]
     Indication: LIVER DISORDER

REACTIONS (4)
  - Frequent bowel movements [Not Recovered/Not Resolved]
  - Pyrexia [Not Recovered/Not Resolved]
  - Drug ineffective [Not Recovered/Not Resolved]
  - Diarrhoea [Not Recovered/Not Resolved]
